FAERS Safety Report 16586050 (Version 1)
Quarter: 2019Q3

REPORT INFORMATION
  Report Type: Report from Study
  Country: US (occurrence: US)
  Receive Date: 20190717
  Receipt Date: 20190717
  Transmission Date: 20191004
  Serious: Yes (Other)
  Sender: FDA-Public Use
  Company Number: US-TAIHO ONCOLOGY  INC-EU-2019-02355

PATIENT
  Age: 73 Year
  Sex: Male

DRUGS (10)
  1. IRON [Concomitant]
     Active Substance: IRON
     Dosage: NI
  2. METFORMIN [Concomitant]
     Active Substance: METFORMIN HYDROCHLORIDE
     Dosage: NI
  3. AMLODIPINE [Concomitant]
     Active Substance: AMLODIPINE BESYLATE
     Dosage: NI
  4. HYDROXYCHLOROQUINE [Concomitant]
     Active Substance: HYDROXYCHLOROQUINE
     Dosage: NI
  5. PREDNISONE. [Concomitant]
     Active Substance: PREDNISONE
     Dosage: NI
  6. CLONIDINE. [Concomitant]
     Active Substance: CLONIDINE
     Dosage: NI
  7. ELIQUIS [Concomitant]
     Active Substance: APIXABAN
     Dosage: NI
  8. LISINOPRIL. [Concomitant]
     Active Substance: LISINOPRIL
     Dosage: NI
  9. ALLOPURINOL. [Concomitant]
     Active Substance: ALLOPURINOL
     Dosage: NI
  10. LONSURF [Suspect]
     Active Substance: TIPIRACIL HYDROCHLORIDE\TRIFLURIDINE
     Indication: COLON CANCER
     Dosage: CURRENT CYCLE 1
     Route: 048
     Dates: start: 20190618

REACTIONS (4)
  - Decreased appetite [Not Recovered/Not Resolved]
  - Diarrhoea [Not Recovered/Not Resolved]
  - Taste disorder [Not Recovered/Not Resolved]
  - Blood count abnormal [Not Recovered/Not Resolved]

NARRATIVE: CASE EVENT DATE: 20190702
